FAERS Safety Report 11059175 (Version 1)
Quarter: 2015Q2

REPORT INFORMATION
  Report Type: Spontaneous
  Country: US (occurrence: None)
  Receive Date: 20150422
  Receipt Date: 20150422
  Transmission Date: 20150821
  Serious: Yes (Hospitalization)
  Sender: FDA-Public Use
  Company Number: None

PATIENT
  Age: 67 Year
  Sex: Male
  Weight: 113.4 kg

DRUGS (3)
  1. LISINOPRIL. [Suspect]
     Active Substance: LISINOPRIL
     Indication: HYPERTENSION
     Dosage: 1 TABLET?QD?ORAL
     Route: 048
  2. POTASSIUM CHLORIDE IN DEXTROSE AND SODIUM CHLORIDE [Suspect]
     Active Substance: DEXTROSE\DEXTROSE MONOHYDRATE\POTASSIUM CHLORIDE\SODIUM CHLORIDE
     Indication: BLOOD POTASSIUM DECREASED
     Dosage: 2 TABLETS?BID?ORAL
     Route: 048
  3. SPIRONOLACTONE. [Concomitant]
     Active Substance: SPIRONOLACTONE

REACTIONS (1)
  - Blood potassium increased [None]

NARRATIVE: CASE EVENT DATE: 20150419
